FAERS Safety Report 23020164 (Version 1)
Quarter: 2023Q4

REPORT INFORMATION
  Report Type: Report from Study
  Country: US (occurrence: US)
  Receive Date: 20231003
  Receipt Date: 20231003
  Transmission Date: 20240110
  Serious: Yes (Other)
  Sender: FDA-Public Use
  Company Number: US-JNJFOC-20230957167

PATIENT

DRUGS (2)
  1. SPRAVATO [Suspect]
     Active Substance: ESKETAMINE
     Indication: Depression
     Dates: start: 202306
  2. SPRAVATO [Suspect]
     Active Substance: ESKETAMINE
     Dosage: LATEST DOSE 21-SEP-2023
     Dates: start: 2023

REACTIONS (3)
  - Paralysis [Recovering/Resolving]
  - Fatigue [Recovering/Resolving]
  - Therapeutic response decreased [Unknown]

NARRATIVE: CASE EVENT DATE: 20230101
